FAERS Safety Report 13402102 (Version 1)
Quarter: 2017Q2

REPORT INFORMATION
  Report Type: Spontaneous
  Country: FR (occurrence: FR)
  Receive Date: 20170404
  Receipt Date: 20170404
  Transmission Date: 20170830
  Serious: Yes (Hospitalization)
  Sender: FDA-Public Use
  Company Number: FR-ASTRAZENECA-2017SE33179

PATIENT
  Age: 25311 Day
  Sex: Female

DRUGS (5)
  1. ALLOPURINOL. [Suspect]
     Active Substance: ALLOPURINOL
     Indication: GOUT
     Route: 065
     Dates: start: 20170116, end: 20170216
  2. COZAAR [Concomitant]
     Active Substance: LOSARTAN POTASSIUM
  3. ATENOLOL. [Concomitant]
     Active Substance: ATENOLOL
     Dosage: 50 MG; HALF DF DAILY
  4. CALDINE [Concomitant]
     Active Substance: LACIDIPINE
  5. ATACAND [Suspect]
     Active Substance: CANDESARTAN CILEXETIL
     Indication: HYPERTENSION
     Route: 048
     Dates: start: 20170123, end: 20170214

REACTIONS (6)
  - Drug reaction with eosinophilia and systemic symptoms [Recovering/Resolving]
  - Rhinorrhoea [Unknown]
  - Odynophagia [Unknown]
  - Headache [Unknown]
  - Myalgia [Unknown]
  - Localised oedema [Unknown]

NARRATIVE: CASE EVENT DATE: 20170211
